FAERS Safety Report 22061413 (Version 1)
Quarter: 2023Q1

REPORT INFORMATION
  Report Type: Report from Study
  Country: HU (occurrence: HU)
  Receive Date: 20230304
  Receipt Date: 20230304
  Transmission Date: 20230417
  Serious: Yes (Disabling, Other)
  Sender: FDA-Public Use
  Company Number: HU-JNJFOC-20220959772

PATIENT
  Sex: Male
  Weight: 76 kg

DRUGS (1)
  1. IBRUTINIB [Suspect]
     Active Substance: IBRUTINIB
     Indication: Chronic lymphocytic leukaemia
     Route: 048
     Dates: start: 20220328, end: 20220920

REACTIONS (3)
  - Atrial fibrillation [Not Recovered/Not Resolved]
  - Hyperbilirubinaemia [Unknown]
  - Cardiac disorder [Unknown]
